FAERS Safety Report 18240222 (Version 2)
Quarter: 2020Q3

REPORT INFORMATION
  Report Type: Report from Study
  Country: US (occurrence: US)
  Receive Date: 20200908
  Receipt Date: 20200915
  Transmission Date: 20201103
  Serious: Yes (Hospitalization)
  Sender: FDA-Public Use
  Company Number: US-HORIZON-KRY-1163-2020

PATIENT
  Age: 61 Year
  Sex: Male

DRUGS (8)
  1. GABAPENTIN. [Concomitant]
     Active Substance: GABAPENTIN
  2. PANTOPRAZOLE [Concomitant]
     Active Substance: PANTOPRAZOLE
  3. KRYSTEXXA [Suspect]
     Active Substance: PEGLOTICASE
     Indication: GOUT
     Dosage: IV EVERY 2 WEEKS
     Route: 042
     Dates: start: 20200804
  4. AMIODARONE [Concomitant]
     Active Substance: AMIODARONE
  5. SYMBICORT [Concomitant]
     Active Substance: BUDESONIDE\FORMOTEROL FUMARATE DIHYDRATE
  6. XARELTO [Concomitant]
     Active Substance: RIVAROXABAN
  7. LOVASTATIN. [Concomitant]
     Active Substance: LOVASTATIN
  8. TORSEMIDE. [Concomitant]
     Active Substance: TORSEMIDE

REACTIONS (3)
  - Inflammation [Unknown]
  - Arthralgia [Not Recovered/Not Resolved]
  - Muscular weakness [Unknown]
